FAERS Safety Report 9998937 (Version 1)
Quarter: 2014Q1

REPORT INFORMATION
  Report Type: Spontaneous
  Country: US (occurrence: None)
  Receive Date: 20140311
  Receipt Date: 20140311
  Transmission Date: 20141002
  Serious: Yes (Death)
  Sender: FDA-Public Use
  Company Number: None

PATIENT
  Age: 74 Year
  Sex: Female
  Weight: 63.5 kg

DRUGS (2)
  1. LASIX [Suspect]
     Indication: DYSPNOEA
     Dosage: STAT DOSE?1 DOSE
     Route: 042
  2. DILAUDID [Concomitant]

REACTIONS (2)
  - Overdose [None]
  - Cardio-respiratory arrest [None]
